FAERS Safety Report 5892732-3 (Version None)
Quarter: 2008Q3

REPORT INFORMATION
  Report Type: 
  Country: None (occurrence: None)
  Receive Date: 20080923
  Receipt Date: 20080915
  Transmission Date: 20090109
  Serious: Yes (Hospitalization)
  Sender: FDA-Public Use
  Company Number: FR-NOVOPROD-278887

PATIENT
  Age: 76 Year
  Sex: Male

DRUGS (2)
  1. NOVONORM [Suspect]
     Indication: DIABETES MELLITUS
  2. LEVEMIR [Suspect]
     Indication: DIABETES MELLITUS
     Route: 058
     Dates: start: 20080603

REACTIONS (2)
  - DIABETES MELLITUS INADEQUATE CONTROL [None]
  - THROMBOCYTOPENIA [None]
